FAERS Safety Report 8370864-8 (Version None)
Quarter: 2012Q2

REPORT INFORMATION
  Report Type: 
  Country: None (occurrence: None)
  Receive Date: 20120518
  Receipt Date: 20110929
  Transmission Date: 20120825
  Serious: No
  Sender: FDA-Public Use
  Company Number: US-ASTRAZENECA-2011SE66640

PATIENT
  Sex: Female

DRUGS (1)
  1. PRILOSEC OTC [Suspect]
     Route: 048
     Dates: start: 20110921, end: 20110928

REACTIONS (7)
  - SENSATION OF FOREIGN BODY [None]
  - ARTHRALGIA [None]
  - NAUSEA [None]
  - CHOKING SENSATION [None]
  - INSOMNIA [None]
  - FLATULENCE [None]
  - HEADACHE [None]
